FAERS Safety Report 17715829 (Version 2)
Quarter: 2020Q2

REPORT INFORMATION
  Report Type: Spontaneous
  Country: NL (occurrence: NL)
  Receive Date: 20200427
  Receipt Date: 20200512
  Transmission Date: 20200714
  Serious: Yes (Hospitalization)
  Sender: FDA-Public Use
  Company Number: NL-SUN PHARMACEUTICAL INDUSTRIES LTD-2020RR-245257

PATIENT
  Age: 35 Year
  Sex: Male
  Weight: 92 kg

DRUGS (4)
  1. FLUCLOXACILLINEFLUCLOXACILLINE CAPSULE 500MG [Concomitant]
     Dosage: TABLET 3 DD 500 MG
  2. FLUCLOXACILLINEFLUCLOXACILLINE CAPSULE 500MG [Concomitant]
     Indication: PRODUCT USED FOR UNKNOWN INDICATION
     Dosage: CAPSULE, 500 MG (MILLIGRAM) ()
     Route: 065
  3. VENLAFAXINE [Suspect]
     Active Substance: VENLAFAXINE HYDROCHLORIDE
     Indication: DEPRESSION
     Dosage: 1D2TABET = 150 MG
     Route: 065
     Dates: start: 200501, end: 20200115
  4. VENLAFAXINE [Suspect]
     Active Substance: VENLAFAXINE HYDROCHLORIDE
     Dosage: 1D2
     Route: 065
     Dates: start: 2005, end: 20200113

REACTIONS (2)
  - Jaundice cholestatic [Recovering/Resolving]
  - Hepatitis [Recovering/Resolving]

NARRATIVE: CASE EVENT DATE: 20191210
